FAERS Safety Report 9176189 (Version 1)
Quarter: 2013Q1

REPORT INFORMATION
  Report Type: Spontaneous
  Country: US (occurrence: US)
  Receive Date: 20130321
  Receipt Date: 20130321
  Transmission Date: 20140127
  Serious: Yes (Other)
  Sender: FDA-Public Use
  Company Number: US-AMGEN-USASP2013016756

PATIENT
  Age: 34 Year
  Sex: Female
  Weight: 106.58 kg

DRUGS (11)
  1. ENBREL [Suspect]
     Indication: PSORIASIS
     Dosage: 50 MG, 2 TIMES/WK
     Route: 058
     Dates: end: 20130226
  2. ENBREL [Suspect]
     Indication: PSORIATIC ARTHROPATHY
  3. GILDESS FE [Concomitant]
     Dosage: UNK 1/20
  4. PROZAC [Concomitant]
     Dosage: 40 MG, UNK
  5. FIBER [Concomitant]
     Dosage: UNK
  6. OMEPRAZOLE [Concomitant]
     Dosage: 20 MG, UNK
  7. LOVAZA [Concomitant]
     Dosage: 1 G, UNK
  8. FENOFIBRATE [Concomitant]
     Dosage: 160 MG, UNK
  9. VITAMIN D3 [Concomitant]
     Dosage: 10000 IU, UNK
  10. VITAMIN B-12 [Concomitant]
     Dosage: 2000 MUG, UNK
  11. BUSPAR [Concomitant]
     Dosage: 5 MG, UNK

REACTIONS (6)
  - Hypersensitivity [Recovered/Resolved]
  - Pharyngeal oedema [Recovered/Resolved]
  - Local swelling [Recovered/Resolved]
  - Influenza like illness [Unknown]
  - Arthralgia [Recovered/Resolved]
  - Injection site urticaria [Recovered/Resolved]
